FAERS Safety Report 6789544-5 (Version None)
Quarter: 2010Q2

REPORT INFORMATION
  Report Type: 
  Country: None (occurrence: None)
  Receive Date: 20100624
  Receipt Date: 20100615
  Transmission Date: 20101027
  Serious: Yes (Hospitalization)
  Sender: FDA-Public Use
  Company Number: 2005BI020831

PATIENT
  Sex: Male

DRUGS (2)
  1. AVONEX [Suspect]
     Indication: MULTIPLE SCLEROSIS
     Route: 030
     Dates: start: 19980302
  2. AVONEX [Suspect]
     Route: 030
     Dates: end: 20060801

REACTIONS (4)
  - BODY TEMPERATURE INCREASED [None]
  - CHONDROPATHY [None]
  - ILL-DEFINED DISORDER [None]
  - INJURY [None]
